FAERS Safety Report 4694094-6 (Version None)
Quarter: 2005Q2

REPORT INFORMATION
  Report Type: 
  Country: None (occurrence: None)
  Receive Date: 20050617
  Receipt Date: 20050606
  Transmission Date: 20051028
  Serious: Yes (Hospitalization, Other)
  Sender: FDA-Public Use
  Company Number: MK200506-0045-1

PATIENT
  Age: 61 Year
  Sex: Female

DRUGS (4)
  1. MORPHINE SULFATE [Suspect]
     Indication: INTENTIONAL MISUSE
     Dosage: 30 MG, 30-40 TABS
     Dates: start: 20050523, end: 20050523
  2. MORPHINE SULFATE [Suspect]
     Indication: OVERDOSE
     Dosage: 30 MG, 30-40 TABS
     Dates: start: 20050523, end: 20050523
  3. TRICYCLIC ANTIDEPRESSANTS [Suspect]
     Indication: INTENTIONAL MISUSE
     Dates: start: 20050523, end: 20050523
  4. TRICYCLIC ANTIDEPRESSANTS [Suspect]
     Indication: OVERDOSE
     Dates: start: 20050523, end: 20050523

REACTIONS (2)
  - INTENTIONAL MISUSE [None]
  - MULTIPLE DRUG OVERDOSE [None]
